FAERS Safety Report 17019546 (Version 1)
Quarter: 2020Q3

REPORT INFORMATION
  Report Type: Spontaneous
  Country: IL (occurrence: IL)
  Receive Date: 20191112
  Receipt Date: 20191112
  Transmission Date: 20201105
  Serious: Yes (Other)
  Sender: FDA-Public Use
  Company Number: IL-ROCHE-2458356

PATIENT
  Age: 42 Year
  Sex: Male

DRUGS (4)
  1. XALKORI [Suspect]
     Active Substance: CRIZOTINIB
     Indication: LUNG NEOPLASM MALIGNANT
     Route: 065
  2. ALECTINIB. [Suspect]
     Active Substance: ALECTINIB
     Indication: LUNG NEOPLASM MALIGNANT
     Route: 065
  3. XGEVA [Concomitant]
     Active Substance: DENOSUMAB
  4. ELIQUIS [Concomitant]
     Active Substance: APIXABAN

REACTIONS (5)
  - Pyrexia [Recovered/Resolved]
  - Hypoventilation [Unknown]
  - Pleural effusion [Unknown]
  - Bone pain [Recovered/Resolved]
  - Staphylococcal infection [Recovered/Resolved]
